FAERS Safety Report 14199647 (Version 3)
Quarter: 2017Q4

REPORT INFORMATION
  Report Type: Report from Study
  Country: IE (occurrence: IE)
  Receive Date: 20171117
  Receipt Date: 20171226
  Transmission Date: 20180321
  Serious: Yes (Other)
  Sender: FDA-Public Use
  Company Number: IE-TAKEDA-2017MPI010095

PATIENT
  Age: 79 Year
  Sex: Male

DRUGS (10)
  1. PREGABALIN. [Concomitant]
     Active Substance: PREGABALIN
     Dosage: 25 MG, TID
     Route: 050
  2. ARANESP [Concomitant]
     Active Substance: DARBEPOETIN ALFA
     Dosage: 300 UG, Q3WEEKS
     Route: 050
     Dates: start: 20170531
  3. MELPHALAN. [Concomitant]
     Active Substance: MELPHALAN
     Dosage: UNK
     Route: 050
  4. PREDNISOLONE. [Concomitant]
     Active Substance: PREDNISOLONE
     Dosage: UNK
     Route: 050
  5. VIMOVO [Concomitant]
     Active Substance: ESOMEPRAZOLE MAGNESIUM\NAPROXEN
     Dosage: UNK, BID
     Route: 050
  6. VELCADE [Suspect]
     Active Substance: BORTEZOMIB
     Indication: PLASMA CELL MYELOMA
     Dosage: 1.3 MG/M2, UNK
     Route: 058
     Dates: start: 20170822
  7. EXPUTEX [Concomitant]
     Dosage: 500 MG, TID
     Route: 050
  8. NEORECORMON [Concomitant]
     Active Substance: ERYTHROPOIETIN
     Dosage: 10000 MG, 1/WEEK
     Route: 050
  9. CLARITHROMYCIN. [Concomitant]
     Active Substance: CLARITHROMYCIN
     Dosage: 500 MG, BID
     Route: 050
  10. COMBODART [Concomitant]
     Active Substance: DUTASTERIDE\TAMSULOSIN
     Dosage: 0.5 MG/0.4 MG, QD
     Route: 050

REACTIONS (3)
  - Respiratory tract infection [Not Recovered/Not Resolved]
  - Neuropathy peripheral [Not Recovered/Not Resolved]
  - Dyspnoea [Not Recovered/Not Resolved]

NARRATIVE: CASE EVENT DATE: 20171101
